FAERS Safety Report 9772518 (Version 3)
Quarter: 2014Q1

REPORT INFORMATION
  Report Type: Spontaneous
  Country: AR (occurrence: AR)
  Receive Date: 20131219
  Receipt Date: 20140228
  Transmission Date: 20141002
  Serious: No
  Sender: FDA-Public Use
  Company Number: AR-PFIZER INC-2013259746

PATIENT
  Age: 60 Year
  Sex: Female

DRUGS (6)
  1. RAPAMUNE [Suspect]
     Indication: RENAL TRANSPLANT
     Dosage: 2 MG, 1X/DAY
     Dates: start: 20130319, end: 20130507
  2. DELTISONA B [Concomitant]
     Dosage: 4 MG, 1X/DAY
  3. ATORVASTATIN [Concomitant]
     Dosage: UNK
  4. CARDIOL [Concomitant]
     Dosage: UNK
  5. CALCIUM [Concomitant]
     Dosage: UNK
  6. ERGOCALCIFEROL [Concomitant]
     Dosage: UNK

REACTIONS (3)
  - Hypersensitivity [Recovered/Resolved]
  - Stomatitis [Recovered/Resolved]
  - Drug intolerance [Recovered/Resolved]
